FAERS Safety Report 7754438-5 (Version None)
Quarter: 2011Q3

REPORT INFORMATION
  Report Type: 
  Country: None (occurrence: None)
  Receive Date: 20110915
  Receipt Date: 20110906
  Transmission Date: 20111222
  Serious: Yes (Death)
  Sender: FDA-Public Use
  Company Number: BE-CELGENEUS-013-50794-11080749

PATIENT
  Sex: Male

DRUGS (31)
  1. VIDAZA [Suspect]
     Dosage: 138 MILLIGRAM
     Route: 065
     Dates: start: 20110726, end: 20110801
  2. FOLIC ACID [Concomitant]
     Route: 065
     Dates: start: 20110124
  3. ESOMEPRAZOLE SODIUM [Concomitant]
     Route: 065
     Dates: start: 20110505
  4. PLATELETS [Concomitant]
     Route: 065
     Dates: start: 20110415, end: 20110626
  5. ACETAMINOPHEN [Concomitant]
     Route: 065
     Dates: start: 20110705, end: 20110711
  6. FLUCONAZOLE [Concomitant]
     Route: 065
     Dates: start: 20110524
  7. RED BLOOD CELLS [Concomitant]
     Route: 065
     Dates: start: 20110726, end: 20110726
  8. CEFEPIME [Concomitant]
     Route: 065
     Dates: start: 20110422, end: 20110505
  9. RANITIDINE [Concomitant]
     Route: 065
     Dates: start: 20110227
  10. MAGNESIUM HYDROXIDE TAB [Concomitant]
     Route: 065
     Dates: start: 20110411
  11. ESOMEPRAZOLE SODIUM [Concomitant]
     Route: 065
     Dates: start: 20110411, end: 20110505
  12. SYNGEL [Concomitant]
     Route: 065
     Dates: start: 20110419
  13. PLATELETS [Concomitant]
     Route: 065
     Dates: start: 20110703, end: 20110704
  14. PLATELETS [Concomitant]
     Route: 065
     Dates: start: 20110713, end: 20110713
  15. PLATELETS [Concomitant]
     Route: 065
     Dates: start: 20110726, end: 20110726
  16. CIPROFLOXACIN [Concomitant]
     Route: 065
     Dates: start: 20110520
  17. BETAMETHASONE [Concomitant]
     Route: 065
     Dates: start: 20110524
  18. METHYLPREDNISOLONE [Concomitant]
     Route: 065
     Dates: start: 20110711, end: 20110714
  19. NOVABAN [Concomitant]
     Route: 065
     Dates: start: 20110705, end: 20110706
  20. RED BLOOD CELLS [Concomitant]
     Route: 065
     Dates: start: 20110415, end: 20110707
  21. CIPROFLOXACIN [Concomitant]
     Route: 065
     Dates: start: 20110505, end: 20110516
  22. CIPROFLOXACIN HCL [Concomitant]
     Route: 065
     Dates: start: 20110520
  23. PLATELETS [Concomitant]
     Route: 065
     Dates: start: 20110701, end: 20110701
  24. PLATELETS [Concomitant]
     Route: 065
     Dates: start: 20110722, end: 20110722
  25. PIPERACILLIN AND TAZOBACTAM [Concomitant]
     Route: 065
     Dates: start: 20110616, end: 20110709
  26. AMOXICILLIN [Concomitant]
     Route: 065
     Dates: start: 20110415
  27. ACYCLOVIR [Concomitant]
     Route: 065
     Dates: start: 20110130
  28. PLATELETS [Concomitant]
     Route: 065
     Dates: start: 20110706, end: 20110706
  29. CIPROFLOXACIN [Concomitant]
     Route: 065
     Dates: start: 20110415
  30. PLATELETS [Concomitant]
     Route: 065
     Dates: start: 20110709, end: 20110709
  31. PLATELETS [Concomitant]
     Route: 065
     Dates: start: 20110718, end: 20110718

REACTIONS (2)
  - ENTEROCOLITIS INFECTIOUS [None]
  - CLOSTRIDIUM DIFFICILE SEPSIS [None]
